FAERS Safety Report 5978597-X (Version None)
Quarter: 2008Q4

REPORT INFORMATION
  Report Type: 
  Country: None (occurrence: None)
  Receive Date: 20081204
  Receipt Date: 20081127
  Transmission Date: 20090506
  Serious: Yes (Disabling)
  Sender: FDA-Public Use
  Company Number: B0547988A

PATIENT
  Age: 58 Year
  Sex: Female
  Weight: 71 kg

DRUGS (6)
  1. ACYCLOVIR [Suspect]
     Dosage: 4000MG PER DAY
     Route: 048
     Dates: start: 20080828, end: 20080908
  2. ACETAMINOPHEN W/ CODEINE [Concomitant]
     Indication: NEURALGIA
     Dates: start: 20080101
  3. ATENOLOL [Concomitant]
     Indication: HYPERTENSION
     Dosage: 50MG PER DAY
     Route: 048
     Dates: start: 20080101
  4. BENDROFLUMETHIAZIDE [Concomitant]
     Indication: HYPERTENSION
     Dosage: 2.5MG PER DAY
     Route: 048
     Dates: start: 20080101
  5. AMITRIPTYLINE HCL [Concomitant]
     Route: 048
     Dates: start: 20080101
  6. OESTRADIOL [Concomitant]
     Indication: ATROPHY
     Dates: start: 20080101

REACTIONS (4)
  - MALAISE [None]
  - OEDEMA [None]
  - PAIN [None]
  - THIRST [None]
